FAERS Safety Report 24850982 (Version 2)
Quarter: 2025Q1

REPORT INFORMATION
  Report Type: Spontaneous
  Country: FR (occurrence: FR)
  Receive Date: 20250116
  Receipt Date: 20250306
  Transmission Date: 20250408
  Serious: Yes (Hospitalization, Other)
  Sender: FRESENIUS KABI
  Company Number: None

PATIENT
  Age: 83 Year
  Sex: Female
  Weight: 60 kg

DRUGS (29)
  1. PROPOFOL [Suspect]
     Active Substance: PROPOFOL
     Indication: General anaesthesia
     Route: 042
     Dates: start: 20170206
  2. PROPOFOL [Suspect]
     Active Substance: PROPOFOL
     Route: 042
  3. PROPOFOL [Suspect]
     Active Substance: PROPOFOL
     Route: 042
  4. PROPOFOL [Suspect]
     Active Substance: PROPOFOL
     Route: 042
  5. PROPOFOL [Suspect]
     Active Substance: PROPOFOL
     Route: 042
  6. PROPOFOL [Suspect]
     Active Substance: PROPOFOL
     Route: 042
  7. PROPOFOL [Suspect]
     Active Substance: PROPOFOL
     Route: 042
  8. PROPOFOL [Suspect]
     Active Substance: PROPOFOL
     Route: 042
  9. DIPRIVAN [Suspect]
     Active Substance: PROPOFOL
     Indication: General anaesthesia
     Route: 042
     Dates: start: 20170206
  10. DIPRIVAN [Suspect]
     Active Substance: PROPOFOL
     Route: 042
  11. DIPRIVAN [Suspect]
     Active Substance: PROPOFOL
     Route: 042
  12. DIPRIVAN [Suspect]
     Active Substance: PROPOFOL
     Route: 042
     Dates: start: 20170206
  13. DIPRIVAN [Suspect]
     Active Substance: PROPOFOL
     Route: 042
     Dates: start: 20170206
  14. DIPRIVAN [Suspect]
     Active Substance: PROPOFOL
     Route: 042
     Dates: start: 20170206
  15. DIPRIVAN [Suspect]
     Active Substance: PROPOFOL
     Route: 042
  16. DIPRIVAN [Suspect]
     Active Substance: PROPOFOL
     Route: 042
  17. ULTIVA [Suspect]
     Active Substance: REMIFENTANIL HYDROCHLORIDE
     Indication: General anaesthesia
     Route: 042
     Dates: start: 20170206
  18. ULTIVA [Suspect]
     Active Substance: REMIFENTANIL HYDROCHLORIDE
     Indication: Analgesic therapy
     Route: 042
  19. ULTIVA [Suspect]
     Active Substance: REMIFENTANIL HYDROCHLORIDE
     Route: 042
  20. ULTIVA [Suspect]
     Active Substance: REMIFENTANIL HYDROCHLORIDE
     Route: 042
     Dates: start: 20170206
  21. ROCURONIUM BROMIDE [Suspect]
     Active Substance: ROCURONIUM BROMIDE
     Indication: Anaesthesia
     Route: 042
     Dates: start: 20170206
  22. ROCURONIUM BROMIDE [Suspect]
     Active Substance: ROCURONIUM BROMIDE
     Indication: Endotracheal intubation
     Route: 042
     Dates: start: 20170206, end: 20170206
  23. CEFAZOLIN [Suspect]
     Active Substance: CEFAZOLIN
     Indication: Prophylaxis
     Route: 042
     Dates: start: 20170206
  24. CEFAZOLIN [Suspect]
     Active Substance: CEFAZOLIN
     Route: 042
     Dates: start: 20170206
  25. KETAMINE [Concomitant]
     Active Substance: KETAMINE
     Indication: Analgesic therapy
     Route: 042
     Dates: start: 20170206
  26. KETAMINE [Concomitant]
     Active Substance: KETAMINE
     Route: 042
     Dates: start: 20170206
  27. DEXAMETHASONE [Concomitant]
     Active Substance: DEXAMETHASONE
     Indication: Prophylaxis of nausea and vomiting
     Route: 042
     Dates: start: 20170206
  28. DEXAMETHASONE [Concomitant]
     Active Substance: DEXAMETHASONE
     Route: 042
     Dates: start: 20170206
  29. DESFLURANE [Concomitant]
     Active Substance: DESFLURANE
     Indication: Product used for unknown indication
     Route: 065
     Dates: start: 20170206

REACTIONS (5)
  - Anaphylactic shock [Recovering/Resolving]
  - Sinus tachycardia [Recovering/Resolving]
  - Blood pressure decreased [Recovering/Resolving]
  - Circumoral oedema [Recovered/Resolved]
  - Tongue oedema [Recovered/Resolved]

NARRATIVE: CASE EVENT DATE: 20170206
